FAERS Safety Report 7567658 (Version 7)
Quarter: 2012Q4

REPORT INFORMATION
  Report Type: 
  Country: BE (occurrence: NL)
  Receive Date: 20100831
  Receipt Date: 20121019
  Transmission Date: 20130627
  Serious: Yes (Death, Life-Threatening)
  Sender: FDA-Public Use
  Company Number: NL-GENZYME-CLOF-1001152

PATIENT
  Age: 57 Year
  Sex: Male
  Weight: 73.9 kg

DRUGS (20)
  1. EVOLTRA [Suspect]
     Indication: ACUTE MYELOID LEUKAEMIA
     Dosage: 28 mg, qd
     Route: 042
     Dates: start: 20100708, end: 20100710
  2. CYTOSINE [Suspect]
     Indication: ACUTE MYELOID LEUKAEMIA
     Dosage: 190 mg, qd
     Route: 042
     Dates: start: 20100707, end: 20100710
  3. ZAVEDOS [Suspect]
     Indication: ACUTE MYELOID LEUKAEMIA
     Dosage: 19 mg, d 1, 3, 5
     Route: 042
     Dates: start: 20100707, end: 20100709
  4. VANCOMYCIN [Concomitant]
     Indication: BACTERAEMIA
     Dosage: 1250 mg, UNK
     Route: 042
     Dates: start: 20100814, end: 20100817
  5. PANTAZOL [Concomitant]
     Indication: PROPHYLAXIS
     Dosage: UNK
     Route: 065
     Dates: start: 20100810, end: 20100824
  6. PARACETAMOL [Concomitant]
     Indication: PYREXIA
     Dosage: 500 mg, UNK
     Route: 065
     Dates: start: 20100810, end: 20100824
  7. CIPROXIN [Concomitant]
     Indication: PROPHYLAXIS
     Dosage: 500 mg, bid
     Route: 048
     Dates: start: 20100810, end: 20100820
  8. KALIUMCHLORIDE [Concomitant]
     Indication: BLOOD POTASSIUM DECREASED
     Dosage: 20 mmol/l, tid
     Route: 048
     Dates: start: 20100817, end: 20100822
  9. CASPOFUNGIN [Concomitant]
     Indication: FUNGAL TEST POSITIVE
     Dosage: 750 mg, tid
     Route: 042
     Dates: start: 20100812, end: 20100821
  10. CASPOFUNGIN [Concomitant]
     Indication: CAECITIS
  11. ACICLOVIR [Concomitant]
     Indication: HERPES SIMPLEX
     Dosage: UNK
     Route: 065
     Dates: start: 20100820, end: 20100821
  12. ACICLOVIR [Concomitant]
     Indication: PROPHYLAXIS
  13. DI-ADRESON F [Concomitant]
     Indication: HISTIOCYTOSIS HAEMATOPHAGIC
     Dosage: UNK
     Route: 065
     Dates: start: 20100819, end: 20100822
  14. SPIRONOLACTON [Concomitant]
     Indication: ASCITES
     Dosage: UNK
     Route: 065
     Dates: end: 20100820
  15. SPIRONOLACTON [Concomitant]
     Indication: PLEURAL EFFUSION
  16. SPIRONOLACTON [Concomitant]
     Indication: OEDEMA
  17. FOLINIC ACID [Concomitant]
     Indication: TOXOPLASMOSIS
     Dosage: UNK
     Route: 065
     Dates: end: 20100824
  18. PLATELETS, CONCENTRATED [Concomitant]
     Indication: PRODUCT USED FOR UNKNOWN INDICATION
     Dosage: UNK
     Route: 065
     Dates: start: 20100708, end: 20100824
  19. FIBRINOGEN [Concomitant]
     Indication: PRODUCT USED FOR UNKNOWN INDICATION
     Dosage: UNK
     Route: 065
     Dates: start: 20100820, end: 20100821
  20. SULFADIAZINE [Concomitant]
     Indication: PRODUCT USED FOR UNKNOWN INDICATION
     Dosage: UNK
     Route: 065
     Dates: end: 20100823

REACTIONS (13)
  - Cerebral haemorrhage [Fatal]
  - Enterococcal bacteraemia [Fatal]
  - Pancytopenia [Fatal]
  - Cerebral fungal infection [Fatal]
  - Febrile neutropenia [Fatal]
  - Clostridial infection [Fatal]
  - Infection [Unknown]
  - Hydrocephalus [None]
  - Chloroma [None]
  - Colitis [None]
  - Supraventricular tachycardia [None]
  - Pleural effusion [None]
  - Pneumonia [None]
